FAERS Safety Report 18312183 (Version 1)
Quarter: 2020Q3

REPORT INFORMATION
  Report Type: Spontaneous
  Country: TR (occurrence: TR)
  Receive Date: 20200925
  Receipt Date: 20200925
  Transmission Date: 20201103
  Serious: Yes (Hospitalization)
  Sender: FDA-Public Use
  Company Number: TR-RECORDATI RARE DISEASES-2091149

PATIENT
  Age: 48 Year
  Sex: Male

DRUGS (1)
  1. SIGNIFOR [Suspect]
     Active Substance: PASIREOTIDE DIASPARTATE
     Indication: CUSHING^S SYNDROME

REACTIONS (4)
  - Pulmonary thrombosis [Unknown]
  - Product supply issue [Unknown]
  - Amnesia [Unknown]
  - Cortisol increased [Unknown]
